FAERS Safety Report 5728427-6 (Version None)
Quarter: 2008Q2

REPORT INFORMATION
  Report Type: 
  Country: None (occurrence: None)
  Receive Date: 20080430
  Receipt Date: 20080115
  Transmission Date: 20081010
  Serious: Yes (Other)
  Sender: FDA-Public Use
  Company Number: USEN-7AVMZN

PATIENT
  Sex: Female

DRUGS (2)
  1. DURAPREP [Suspect]
     Indication: PREOPERATIVE CARE
     Dosage: 26 ML, TOPICAL
     Route: 061
  2. EPIDURAL [Concomitant]

REACTIONS (1)
  - PRURITUS [None]
